FAERS Safety Report 23449490 (Version 3)
Quarter: 2024Q2

REPORT INFORMATION
  Report Type: Spontaneous
  Country: US (occurrence: None)
  Receive Date: 20240129
  Receipt Date: 20240418
  Transmission Date: 20240716
  Serious: No
  Sender: FDA-Public Use
  Company Number: 2024A018578

PATIENT
  Sex: Female

DRUGS (1)
  1. BREZTRI [Suspect]
     Active Substance: BUDESONIDE\FORMOTEROL\GLYCOPYRROLATE
     Dosage: 320 UG, 2 PUFFS TWICE DAILY
     Route: 055
     Dates: start: 202401

REACTIONS (6)
  - Lip pain [Unknown]
  - Visual impairment [Unknown]
  - Cheilitis [Unknown]
  - Wrong technique in device usage process [Unknown]
  - Device use issue [Unknown]
  - Device issue [Unknown]
